FAERS Safety Report 7737534-8 (Version None)
Quarter: 2011Q3

REPORT INFORMATION
  Report Type: 
  Country: None (occurrence: None)
  Receive Date: 20110902
  Receipt Date: 20110824
  Transmission Date: 20111222
  Serious: Yes (Hospitalization, Other)
  Sender: FDA-Public Use
  Company Number: 2011MA012556

PATIENT
  Age: 16 Year
  Sex: Female

DRUGS (4)
  1. ETHAMBUTOL HYDROCHLORIDE [Suspect]
     Indication: TUBERCULOSIS
  2. RIFAMPIN [Suspect]
     Indication: TUBERCULOSIS
  3. ISONIAZID [Suspect]
     Indication: TUBERCULOSIS
  4. PYRAZINAMIDE [Suspect]
     Indication: TUBERCULOSIS

REACTIONS (7)
  - PURPURA [None]
  - DECREASED APPETITE [None]
  - THROMBOCYTOPENIA [None]
  - LUNG CONSOLIDATION [None]
  - HAEMOGLOBIN DECREASED [None]
  - PYREXIA [None]
  - RASH [None]
